FAERS Safety Report 25884649 (Version 1)
Quarter: 2025Q4

REPORT INFORMATION
  Report Type: Spontaneous
  Country: US (occurrence: US)
  Receive Date: 20251006
  Receipt Date: 20251006
  Transmission Date: 20260118
  Serious: No
  Sender: RANBAXY
  Company Number: US-SUN PHARMACEUTICAL INDUSTRIES LTD-2024R1-469796

PATIENT
  Sex: Female

DRUGS (1)
  1. CEQUA [Suspect]
     Active Substance: CYCLOSPORINE
     Indication: Dry eye
     Dosage: UNK
     Route: 065
     Dates: start: 202406, end: 202409

REACTIONS (5)
  - Sinusitis [Unknown]
  - Eye irritation [Unknown]
  - Condition aggravated [Unknown]
  - Drug ineffective [Unknown]
  - Therapy cessation [Unknown]
